FAERS Safety Report 6862425-4 (Version None)
Quarter: 2010Q3

REPORT INFORMATION
  Report Type: 
  Country: None (occurrence: None)
  Receive Date: 20100716
  Receipt Date: 20100705
  Transmission Date: 20110219
  Serious: Yes (Other)
  Sender: FDA-Public Use
  Company Number: 2010MA000434

PATIENT
  Age: 16 Year
  Sex: Female

DRUGS (10)
  1. CETIRIZINE HCL [Suspect]
     Indication: SEASONAL ALLERGY
     Dosage: 10 MG; QD;
     Dates: start: 20090917, end: 20091013
  2. PERMETHRIN [Suspect]
     Indication: ACARODERMATITIS
     Dosage: TOP
     Route: 061
     Dates: start: 20090917, end: 20090924
  3. FLOXACILLIN SODIUM [Suspect]
     Indication: ACARODERMATITIS
     Dosage: 250 MG; QID;
     Dates: start: 20090710
  4. TRIMETHOPRIM [Suspect]
     Indication: URINARY TRACT INFECTION
     Dosage: 200 MG; BID;
     Dates: start: 20090604
  5. MALATHION [Suspect]
     Indication: ACARODERMATITIS
     Dosage: 5 PCT; QD; TOP
     Route: 061
     Dates: start: 20090806, end: 20090813
  6. CERVARIX (NO PREF. NAME) [Suspect]
     Indication: PROPHYLAXIS
     Dosage: ; X1; IM
     Route: 030
     Dates: start: 20091008, end: 20091008
  7. FUCIDIN H (FUCIDIN H) [Suspect]
     Indication: ACARODERMATITIS
     Dates: start: 20090710
  8. MALATHION [Suspect]
     Indication: ACARODERMATITIS
     Dosage: 5 PCT; QD;
     Dates: start: 20090623
  9. DEPO-PROVERA [Suspect]
     Indication: CONTRACEPTION
     Dosage: ; IM
     Route: 030
     Dates: start: 20090623
  10. DEPO-PROVERA [Suspect]
     Indication: CONTRACEPTION
     Dosage: ; IM
     Route: 030
     Dates: start: 20090911

REACTIONS (3)
  - DRUG EXPOSURE DURING PREGNANCY [None]
  - PREGNANCY WITH INJECTABLE CONTRACEPTIVE [None]
  - VENTOUSE EXTRACTION [None]
